FAERS Safety Report 8115358-X (Version None)
Quarter: 2012Q1

REPORT INFORMATION
  Report Type: 
  Country: None (occurrence: None)
  Receive Date: 20120206
  Receipt Date: 20120206
  Transmission Date: 20120608
  Serious: Yes (Other)
  Sender: FDA-Public Use
  Company Number: None

PATIENT
  Age: 56 Year
  Sex: Male
  Weight: 86.182 kg

DRUGS (1)
  1. PRADAXA [Suspect]
     Indication: ATRIAL FIBRILLATION
     Dosage: 150MG
     Route: 048
     Dates: start: 20111115, end: 20111202

REACTIONS (9)
  - HEADACHE [None]
  - SWELLING [None]
  - RASH [None]
  - PYREXIA [None]
  - VOMITING [None]
  - PRURITUS [None]
  - BLISTER [None]
  - SCAR [None]
  - DYSPEPSIA [None]
